FAERS Safety Report 5868029-4 (Version None)
Quarter: 2008Q3

REPORT INFORMATION
  Report Type: 
  Country: None (occurrence: None)
  Receive Date: 20080902
  Receipt Date: 20080307
  Transmission Date: 20090109
  Serious: No
  Sender: FDA-Public Use
  Company Number: US-ABBOTT-08P-163-0441604-00

PATIENT
  Sex: Male
  Weight: 72.64 kg

DRUGS (1)
  1. DEPAKOTE [Suspect]
     Indication: DEPRESSION
     Route: 048
     Dates: start: 20080211, end: 20080229

REACTIONS (2)
  - NAUSEA [None]
  - VOMITING [None]
